FAERS Safety Report 4311587-1 (Version None)
Quarter: 2004Q1

REPORT INFORMATION
  Report Type: 
  Country: None (occurrence: None)
  Receive Date: 20040302
  Receipt Date: 20031110
  Transmission Date: 20041129
  Serious: No
  Sender: FDA-Public Use
  Company Number: 200328301BWH

PATIENT
  Age: 68 Year
  Sex: Male
  Weight: 79.3795 kg

DRUGS (7)
  1. LEVITRA [Suspect]
     Indication: ERECTILE DYSFUNCTION
     Dosage: 10, MG, PRN, ORAL; 20 MG, PRN, ORAL; 30 MG, PRN, ORAL
     Route: 048
     Dates: start: 20031001
  2. LEVITRA [Suspect]
     Indication: ERECTILE DYSFUNCTION
     Dosage: 10, MG, PRN, ORAL; 20 MG, PRN, ORAL; 30 MG, PRN, ORAL
     Route: 048
     Dates: start: 20031001
  3. LEVITRA [Suspect]
     Indication: ERECTILE DYSFUNCTION
     Dosage: 10, MG, PRN, ORAL; 20 MG, PRN, ORAL; 30 MG, PRN, ORAL
     Route: 048
     Dates: start: 20031019
  4. ZOCOR [Concomitant]
  5. COUMADIN [Concomitant]
  6. GLYBURIDE [Concomitant]
  7. VIAGRA [Concomitant]

REACTIONS (1)
  - DRUG INEFFECTIVE [None]
